FAERS Safety Report 24251802 (Version 2)
Quarter: 2024Q4

REPORT INFORMATION
  Report Type: Spontaneous
  Country: US (occurrence: US)
  Receive Date: 20240827
  Receipt Date: 20241017
  Transmission Date: 20250114
  Serious: No
  Sender: PADAGIS
  Company Number: US-PADAGIS-2024PAD01338

PATIENT

DRUGS (3)
  1. KETOCONAZOLE [Suspect]
     Active Substance: KETOCONAZOLE
     Indication: Skin disorder
     Dosage: UNK DARK IN COLOR AND THICKER IN CONSISTENCY
     Route: 065
  2. KETOCONAZOLE [Suspect]
     Active Substance: KETOCONAZOLE
     Dosage: UNK ITTLE BIT THINNER IN CONSISTENCY AND LIGHEST COLOR SHAMPOO
     Route: 065
  3. KETOCONAZOLE [Suspect]
     Active Substance: KETOCONAZOLE
     Dosage: UNK (MUCH LIGHTER AND MUCH THINNER IN CONSISTENCY)
     Route: 065

REACTIONS (8)
  - Application site erythema [Recovered/Resolved]
  - Application site pruritus [Recovered/Resolved]
  - Application site pain [Recovered/Resolved]
  - Pruritus [Recovered/Resolved]
  - Product use in unapproved indication [Unknown]
  - Liquid product physical issue [Unknown]
  - Product colour issue [Unknown]
  - Product formulation issue [Unknown]
